FAERS Safety Report 15623388 (Version 1)
Quarter: 2018Q4

REPORT INFORMATION
  Report Type: Spontaneous
  Country: KR (occurrence: KR)
  Receive Date: 20181115
  Receipt Date: 20181115
  Transmission Date: 20190205
  Serious: Yes (Other)
  Sender: FDA-Public Use
  Company Number: KR-AKRON, INC.-2058920

PATIENT
  Age: 45 Year
  Sex: Female

DRUGS (1)
  1. COSOPT [Suspect]
     Active Substance: DORZOLAMIDE HYDROCHLORIDE\TIMOLOL MALEATE
     Indication: OPEN ANGLE GLAUCOMA
     Route: 047
     Dates: start: 20170511, end: 20180701

REACTIONS (6)
  - Visual acuity reduced [Recovering/Resolving]
  - Iris disorder [Unknown]
  - Chorioretinal folds [Unknown]
  - Hypotony of eye [Recovering/Resolving]
  - Choroidal effusion [Recovering/Resolving]
  - Chorioretinal folds [Recovering/Resolving]

NARRATIVE: CASE EVENT DATE: 20170517
